FAERS Safety Report 21761329 (Version 2)
Quarter: 2022Q4

REPORT INFORMATION
  Report Type: Spontaneous
  Country: US (occurrence: US)
  Receive Date: 20221221
  Receipt Date: 20221229
  Transmission Date: 20230113
  Serious: No
  Sender: FDA-Public Use
  Company Number: US-PFIZER INC-PV202200124814

PATIENT
  Age: 67 Year
  Sex: Female

DRUGS (1)
  1. XELJANZ [Suspect]
     Active Substance: TOFACITINIB CITRATE
     Dosage: UNK
     Dates: start: 20221210, end: 20221210

REACTIONS (5)
  - Lip discolouration [Unknown]
  - Lip swelling [Unknown]
  - Oral discomfort [Unknown]
  - Lip exfoliation [Unknown]
  - Lip pain [Unknown]
